FAERS Safety Report 6996642-X (Version None)
Quarter: 2010Q3

REPORT INFORMATION
  Report Type: 
  Country: None (occurrence: None)
  Receive Date: 20100918
  Receipt Date: 20090422
  Transmission Date: 20110219
  Serious: No
  Sender: FDA-Public Use
  Company Number: US-WYE-H09097809

PATIENT
  Sex: Male
  Weight: 83.99 kg

DRUGS (4)
  1. EFFEXOR XR [Suspect]
     Indication: ANXIETY
     Route: 048
     Dates: start: 20090301, end: 20090301
  2. EFFEXOR XR [Suspect]
     Route: 048
     Dates: start: 20090101, end: 20090101
  3. EFFEXOR XR [Suspect]
     Route: 048
     Dates: start: 20090101, end: 20090415
  4. ADDERALL 10 [Concomitant]

REACTIONS (3)
  - APATHY [None]
  - DECREASED INTEREST [None]
  - FEELING ABNORMAL [None]
